FAERS Safety Report 4724889-1 (Version None)
Quarter: 2005Q3

REPORT INFORMATION
  Report Type: 
  Country: None (occurrence: None)
  Receive Date: 20050721
  Receipt Date: 20030731
  Transmission Date: 20060218
  Serious: Yes (Hospitalization)
  Sender: FDA-Public Use
  Company Number: D-A2501011-3019

PATIENT
  Age: 82 Year
  Sex: Male
  Weight: 72.6 kg

DRUGS (3)
  1. DONEPEZIL HCL [Suspect]
     Indication: DEMENTIA ALZHEIMER'S TYPE
     Dosage: 5 + 10 MG, 1 IN 1 D, ORAL SEE IMAGE
     Route: 048
     Dates: start: 20030508, end: 20030604
  2. DONEPEZIL HCL [Suspect]
     Indication: DEMENTIA ALZHEIMER'S TYPE
     Dosage: 5 + 10 MG, 1 IN 1 D, ORAL SEE IMAGE
     Route: 048
     Dates: start: 20030605
  3. ACETYLSALICYLIC ACID SRT [Concomitant]

REACTIONS (4)
  - INFECTION [None]
  - POST PROCEDURAL COMPLICATION [None]
  - PYREXIA [None]
  - UNEVALUABLE EVENT [None]
